FAERS Safety Report 7741575-4 (Version None)
Quarter: 2011Q3

REPORT INFORMATION
  Report Type: 
  Country: None (occurrence: None)
  Receive Date: 20110909
  Receipt Date: 20110831
  Transmission Date: 20111222
  Serious: Yes (Hospitalization)
  Sender: FDA-Public Use
  Company Number: CH-ASTRAZENECA-2011SE36772

PATIENT
  Age: 36 Year
  Sex: Female

DRUGS (22)
  1. ESCITALOPRAM [Suspect]
     Indication: DEPRESSION
     Route: 048
     Dates: start: 20110308, end: 20110421
  2. MOTILIUM [Concomitant]
     Indication: VOMITING
     Route: 060
     Dates: start: 20110412, end: 20110421
  3. METOCLOPRAMIDE HYDROCHLORIDE [Concomitant]
     Indication: NAUSEA
     Route: 048
     Dates: start: 20110308, end: 20110411
  4. FLAGYL [Concomitant]
     Indication: PYREXIA
     Dates: start: 20110410, end: 20110503
  5. ZOLPIDEM [Concomitant]
     Indication: SLEEP DISORDER
     Route: 048
     Dates: start: 20110308, end: 20110426
  6. PRIMOLUT N [Concomitant]
     Dosage: ONE PER FOUR DAYS
     Route: 048
  7. IDARUBICIN HYDROCHLORIDE [Suspect]
     Indication: MYELODYSPLASTIC SYNDROME
     Route: 041
     Dates: start: 20110310, end: 20110312
  8. PIPERACILLIN AND TAZOBACTAM [Concomitant]
     Indication: PYREXIA
     Dates: start: 20110415, end: 20110426
  9. ESCITALOPRAM [Suspect]
     Indication: BIPOLAR DISORDER
     Route: 048
     Dates: start: 20110308, end: 20110421
  10. ACETAMINOPHEN [Concomitant]
     Indication: PAIN
     Route: 040
     Dates: start: 20110308, end: 20110426
  11. SCOPOLAMINE [Concomitant]
     Route: 048
     Dates: start: 20110308, end: 20110426
  12. FAMVIR [Suspect]
     Indication: PYREXIA
     Route: 048
     Dates: start: 20110405, end: 20110412
  13. CANCIDAS [Suspect]
     Indication: PYREXIA
     Route: 048
     Dates: start: 20110407, end: 20110412
  14. MOTILIUM [Concomitant]
     Indication: NAUSEA
     Route: 060
     Dates: start: 20110412, end: 20110421
  15. METOCLOPRAMIDE HYDROCHLORIDE [Concomitant]
     Indication: VOMITING
     Route: 048
     Dates: start: 20110308, end: 20110411
  16. CYTOSAR-U [Suspect]
     Indication: MYELODYSPLASTIC SYNDROME
     Route: 041
     Dates: start: 20110329, end: 20110403
  17. NEXIUM [Concomitant]
     Indication: VOMITING
     Route: 048
     Dates: start: 20110308
  18. DEXAMETHASONE [Concomitant]
     Route: 048
     Dates: start: 20110301, end: 20110301
  19. VFEND [Concomitant]
     Indication: PYREXIA
     Dosage: ONE PER TWO DAYS
     Route: 048
     Dates: start: 20110413, end: 20110421
  20. MEROPENEM [Suspect]
     Indication: PYREXIA
     Route: 041
     Dates: start: 20110407
  21. AMSIDYL [Suspect]
     Indication: MYELODYSPLASTIC SYNDROME
     Route: 041
     Dates: start: 20110401
  22. NEXIUM [Concomitant]
     Indication: NAUSEA
     Route: 048
     Dates: start: 20110308

REACTIONS (7)
  - RASH [None]
  - RHABDOMYOLYSIS [None]
  - HEPATOCELLULAR INJURY [None]
  - SEROTONIN SYNDROME [None]
  - CYTARABINE SYNDROME [None]
  - COAGULOPATHY [None]
  - MYALGIA [None]
